FAERS Safety Report 8507271-0 (Version None)
Quarter: 2012Q3

REPORT INFORMATION
  Report Type: 
  Country: None (occurrence: None)
  Receive Date: 20120712
  Receipt Date: 20120710
  Transmission Date: 20120928
  Serious: Yes (Hospitalization)
  Sender: FDA-Public Use
  Company Number: CA-ROCHE-1063282

PATIENT
  Sex: Male
  Weight: 87 kg

DRUGS (7)
  1. LIPITOR [Concomitant]
     Dates: start: 20110303
  2. FOLIC ACID [Concomitant]
     Dates: start: 20120412
  3. DICLOFENAC [Concomitant]
     Dates: start: 20100325, end: 20120423
  4. PLACEBO [Suspect]
     Dates: start: 20120412
  5. ASPIRIN [Concomitant]
     Dates: start: 20050101, end: 20120423
  6. PLACEBO [Suspect]
     Indication: RHEUMATOID ARTHRITIS
     Dosage: DATE OF LAST DOSE PRIOR TO SAE:12/APR/2012
     Route: 048
     Dates: start: 20100415
  7. ACTEMRA [Suspect]
     Indication: RHEUMATOID ARTHRITIS
     Dosage: DATE OF LAST DOSE PRIOR TO SAE:15/MAR/2012
     Route: 042
     Dates: start: 20100415

REACTIONS (2)
  - PLEURAL EFFUSION [None]
  - LOBAR PNEUMONIA [None]
